FAERS Safety Report 25709656 (Version 1)
Quarter: 2025Q3

REPORT INFORMATION
  Report Type: Spontaneous
  Country: US (occurrence: US)
  Receive Date: 20250821
  Receipt Date: 20250821
  Transmission Date: 20251021
  Serious: Yes (Other)
  Sender: DR REDDYS
  Company Number: None

PATIENT
  Age: 32 Year
  Sex: Female

DRUGS (1)
  1. LORAZEPAM [Suspect]
     Active Substance: LORAZEPAM
     Indication: Catatonia
     Dosage: 6-18 MG/DAY; DAYS 1, 38-155
     Route: 042

REACTIONS (3)
  - Oxygen saturation decreased [Unknown]
  - Obstructive sleep apnoea syndrome [Unknown]
  - Condition aggravated [Unknown]
